FAERS Safety Report 5764262-0 (Version None)
Quarter: 2008Q2

REPORT INFORMATION
  Report Type: 
  Country: None (occurrence: None)
  Receive Date: 20080604
  Receipt Date: 20080521
  Transmission Date: 20081010
  Serious: Yes (Death)
  Sender: FDA-Public Use
  Company Number: 2008AL005602

PATIENT
  Age: 74 Year
  Sex: Male
  Weight: 49.8957 kg

DRUGS (1)
  1. DIGOXIN [Suspect]
     Indication: CARDIAC FAILURE CONGESTIVE
     Dosage: 0.125 MG DAILY PO
     Route: 048
     Dates: start: 20070701

REACTIONS (5)
  - ASTHENIA [None]
  - CARDIAC DISORDER [None]
  - DIZZINESS [None]
  - LETHARGY [None]
  - THERAPEUTIC AGENT TOXICITY [None]
